FAERS Safety Report 6919659-X (Version None)
Quarter: 2010Q3

REPORT INFORMATION
  Report Type: 
  Country: None (occurrence: None)
  Receive Date: 20100811
  Receipt Date: 20100805
  Transmission Date: 20110219
  Serious: Yes (Other)
  Sender: FDA-Public Use
  Company Number: DK-TEVA-236094ISR

PATIENT
  Sex: Male

DRUGS (1)
  1. SIMVASTATIN [Suspect]
     Indication: HYPERCHOLESTEROLAEMIA
     Route: 048
     Dates: start: 20091118, end: 20100327

REACTIONS (2)
  - DEPRESSION [None]
  - SUICIDAL IDEATION [None]
